FAERS Safety Report 9529377 (Version 1)
Quarter: 2013Q1

REPORT INFORMATION
  Report Type: Spontaneous
  Country: US (occurrence: None)
  Receive Date: 20130329
  Receipt Date: 20130329
  Transmission Date: 20140127
  Serious: No
  Sender: FDA-Public Use
  Company Number: 1000042791

PATIENT
  Age: 49 Year
  Sex: Female

DRUGS (15)
  1. LINZESS (LINACLOTIDE) (145 MICROGRAM, TABLETS) [Suspect]
     Indication: IRRITABLE BOWEL SYNDROME
     Dosage: 145 MCG (145 MCG, 1 IN 1 D), ORAL
     Route: 048
     Dates: start: 20130131, end: 20130207
  2. LINZESS (LINACLOTIDE) (145 MICROGRAM, TABLETS) [Suspect]
     Indication: CONSTIPATION
     Dosage: 145 MCG (145 MCG, 1 IN 1 D), ORAL
     Route: 048
     Dates: start: 20130131, end: 20130207
  3. OXYCODONE (OXYCODONE) (OXYCODONE) [Concomitant]
  4. MORPHINE (MORPHINE) (MORPHINE) [Concomitant]
  5. TEMAZEPAM (TEMAZEPAM) (TEMAZEPAM) [Concomitant]
  6. NAPROXEN (NAPROXEN) (NAPROXEN) [Concomitant]
  7. CITALOPRAM (CITALOPRAM HYDROBROMIDE) (CITALOPRAM HYDROBROMIDE) [Concomitant]
  8. XANAX (ALPRAZOLAM) (ALPRAZOLAM) [Concomitant]
  9. ESTRADIOL (ESTRADIOL) (ESTRADIOL) [Concomitant]
  10. TOPIRAMATE (TOPIRAMATE) (TOPIRAMATE) [Concomitant]
  11. QUETIAPINE (QUETIAPINE) (QUETIAPINE) [Concomitant]
  12. BIPOLAR DISORDER [Concomitant]
  13. CYMBALTA (DULOXETINE HYDROCHLORIDE) (DULOXETINE HYDROCHLORIDE) [Concomitant]
  14. SOMA (CARISOPRODOL) (CARISOPRODOL) [Concomitant]
  15. ENEMA NOS (ENEMA) (ENEMA) [Concomitant]

REACTIONS (3)
  - Anal spasm [None]
  - Abdominal distension [None]
  - Abdominal pain upper [None]
